FAERS Safety Report 17631692 (Version 1)
Quarter: 2020Q2

REPORT INFORMATION
  Report Type: Spontaneous
  Country: ES (occurrence: ES)
  Receive Date: 20200406
  Receipt Date: 20200406
  Transmission Date: 20200713
  Serious: No
  Sender: FDA-Public Use
  Company Number: ES-TOLMAR, INC.-20ES020081

PATIENT
  Age: 62 Year
  Sex: Male

DRUGS (2)
  1. ELIGARD [Suspect]
     Active Substance: LEUPROLIDE ACETATE
     Dosage: 45 MG, Q 6 MONTH
     Route: 065
     Dates: start: 20200110
  2. ELIGARD [Suspect]
     Active Substance: LEUPROLIDE ACETATE
     Indication: ADENOCARCINOMA
     Dosage: 45 MG, Q 6 MONTH
     Route: 065
     Dates: start: 20191118

REACTIONS (5)
  - Blood testosterone increased [Unknown]
  - Product administration error [None]
  - Product physical consistency issue [None]
  - Inappropriate schedule of product administration [Unknown]
  - Product preparation error [None]

NARRATIVE: CASE EVENT DATE: 20191118
